FAERS Safety Report 6216108-4 (Version None)
Quarter: 2009Q2

REPORT INFORMATION
  Report Type: 
  Country: None (occurrence: None)
  Receive Date: 20090603
  Receipt Date: 20090603
  Transmission Date: 20091009
  Serious: Yes (Other)
  Sender: FDA-Public Use
  Company Number: None

PATIENT
  Sex: Male
  Weight: 73.4827 kg

DRUGS (1)
  1. DIGOXIN [Suspect]
     Indication: HEART RATE ABNORMAL
     Dosage: 1 TABLET DAILY
     Dates: start: 20090201, end: 20090401

REACTIONS (2)
  - ARRHYTHMIA [None]
  - HEART RATE DECREASED [None]
